FAERS Safety Report 8556484-0 (Version None)
Quarter: 2012Q3

REPORT INFORMATION
  Report Type: 
  Country: None (occurrence: None)
  Receive Date: 20120801
  Receipt Date: 20120730
  Transmission Date: 20120928
  Serious: Yes (Death, Life-Threatening)
  Sender: FDA-Public Use
  Company Number: PHHY2012EC065807

PATIENT
  Sex: Female

DRUGS (1)
  1. ZOLEDRONOC ACID [Suspect]
     Indication: OSTEOPOROSIS
     Dosage: 5 MG / 100 ML STAT YEARLY
     Route: 042
     Dates: start: 20101229

REACTIONS (3)
  - CARDIAC VALVE REPLACEMENT COMPLICATION [None]
  - DYSPNOEA [None]
  - HEART VALVE STENOSIS [None]
